FAERS Safety Report 5873873-3 (Version None)
Quarter: 2008Q3

REPORT INFORMATION
  Report Type: 
  Country: None (occurrence: None)
  Receive Date: 20080903
  Receipt Date: 20080903
  Transmission Date: 20090109
  Serious: Yes (Life-Threatening, Hospitalization)
  Sender: FDA-Public Use
  Company Number: None

PATIENT
  Age: 45 Year
  Sex: Male
  Weight: 73.4827 kg

DRUGS (2)
  1. CELLCEPT [Suspect]
     Dosage: 1000 MG TWICE A DAY PO
     Route: 048
     Dates: start: 20060502, end: 20071201
  2. CELLCEPT [Suspect]
     Dosage: 1000 MG TWICE A DAY PO
     Route: 048
     Dates: start: 20080512, end: 20080809

REACTIONS (8)
  - BLINDNESS [None]
  - CATARACT [None]
  - CONFUSIONAL STATE [None]
  - DISORIENTATION [None]
  - EYE PAIN [None]
  - HEADACHE [None]
  - PROGRESSIVE MULTIFOCAL LEUKOENCEPHALOPATHY [None]
  - VOMITING [None]
